FAERS Safety Report 10871515 (Version 1)
Quarter: 2015Q1

REPORT INFORMATION
  Report Type: Spontaneous
  Country: US (occurrence: None)
  Receive Date: 20150223
  Receipt Date: 20150223
  Transmission Date: 20150721
  Serious: Yes (Life-Threatening, Hospitalization, Disabling, Other)
  Sender: FDA-Public Use
  Company Number: None

PATIENT
  Age: 56 Year
  Sex: Female
  Weight: 70.31 kg

DRUGS (10)
  1. LASIX [Concomitant]
     Active Substance: FUROSEMIDE
  2. AVASTIN [Suspect]
     Active Substance: BEVACIZUMAB
     Indication: LUNG CANCER METASTATIC
     Dosage: INTO VEIN
     Dates: start: 20150214
  3. VENTILATOR RESPIRATORY SUPPORT [Suspect]
     Active Substance: UNSPECIFIED INGREDIENT
  4. NASOGASTIC TUBE [Concomitant]
  5. HALDOL [Concomitant]
     Active Substance: HALOPERIDOL
  6. IV VERSED [Concomitant]
  7. VANCOMYCIN [Concomitant]
     Active Substance: VANCOMYCIN
  8. DIFLUCAN [Concomitant]
     Active Substance: FLUCONAZOLE
  9. CARBAPENEMS [Concomitant]
     Active Substance: UNSPECIFIED INGREDIENT
  10. IV PRECEDEX [Concomitant]

REACTIONS (2)
  - Large intestine perforation [None]
  - Infection [None]

NARRATIVE: CASE EVENT DATE: 20150214
